FAERS Safety Report 26105569 (Version 1)
Quarter: 2025Q4

REPORT INFORMATION
  Report Type: Spontaneous
  Country: IN (occurrence: IN)
  Receive Date: 20251201
  Receipt Date: 20251201
  Transmission Date: 20260117
  Serious: Yes (Other)
  Sender: INVENTIA HEALTHCARE LTD
  Company Number: IN-IHL-000703

PATIENT
  Age: 32 Year
  Sex: Female

DRUGS (2)
  1. FLUOXETINE HYDROCHLORIDE [Suspect]
     Active Substance: FLUOXETINE HYDROCHLORIDE
     Indication: Obsessive-compulsive disorder
     Dosage: INITIALLY AT A DOSAGE OF 20 MG/DAY, WHICH WAS INCREASED TO 40 MG/DAY AFTER TWO WEEKS.
     Route: 065
  2. FLUOXETINE HYDROCHLORIDE [Suspect]
     Active Substance: FLUOXETINE HYDROCHLORIDE
     Indication: Obsessive-compulsive disorder
     Dosage: THE FLUOXETINE DOSAGE WAS REDUCED TO 20 MG FOR FOUR WEEKS.
     Route: 065

REACTIONS (3)
  - Menstruation delayed [Recovered/Resolved]
  - Menstruation irregular [Recovered/Resolved]
  - Hypomenorrhoea [Recovered/Resolved]
